FAERS Safety Report 8546115 (Version 4)
Quarter: 2012Q4

REPORT INFORMATION
  Report Type: Report from Study
  Country: JP (occurrence: JP)
  Receive Date: 20120504
  Receipt Date: 20120911
  Transmission Date: 20130627
  Serious: Yes (Other)
  Sender: FDA-Public Use
  Company Number: JP-JNJFOC-20120413885

PATIENT
  Age: 63 Year
  Sex: Male
  Weight: 55 kg

DRUGS (36)
  1. DUROTEP MT [Suspect]
     Indication: PAIN
     Route: 062
     Dates: start: 20120107, end: 20120119
  2. DUROTEP MT [Suspect]
     Indication: PAIN
     Route: 062
     Dates: start: 20111229, end: 20120117
  3. DUROTEP MT [Suspect]
     Indication: PAIN
     Route: 062
     Dates: start: 20120119, end: 20120206
  4. DUROTEP MT [Suspect]
     Indication: PAIN
     Route: 062
     Dates: start: 20120216, end: 20120225
  5. DUROTEP MT [Suspect]
     Indication: PAIN
     Route: 062
     Dates: start: 20120225, end: 20120305
  6. DUROTEP MT [Suspect]
     Indication: PAIN
     Route: 062
     Dates: start: 20120206, end: 20120216
  7. CODEINE PHOSPHATE [Suspect]
     Indication: PRODUCT USED FOR UNKNOWN INDICATION
     Route: 048
     Dates: start: 20111229
  8. CODEINE PHOSPHATE [Suspect]
     Indication: PRODUCT USED FOR UNKNOWN INDICATION
     Route: 048
     Dates: start: 20120105, end: 20120105
  9. CODEINE PHOSPHATE [Suspect]
     Indication: PRODUCT USED FOR UNKNOWN INDICATION
     Route: 048
     Dates: end: 20120104
  10. CODEINE PHOSPHATE [Suspect]
     Indication: PRODUCT USED FOR UNKNOWN INDICATION
     Route: 048
  11. MORPHINE HYDROCHLORIDE [Suspect]
     Indication: WITHDRAWAL SYNDROME
     Route: 048
     Dates: start: 20120105, end: 20120111
  12. MORPHINE HYDROCHLORIDE [Suspect]
     Indication: WITHDRAWAL SYNDROME
     Route: 048
     Dates: start: 20111229, end: 20120104
  13. MORPHINE HYDROCHLORIDE [Suspect]
     Indication: WITHDRAWAL SYNDROME
     Route: 048
     Dates: start: 20120112, end: 20120118
  14. MORPHINE HYDROCHLORIDE [Suspect]
     Indication: WITHDRAWAL SYNDROME
     Route: 048
     Dates: start: 20120217
  15. MORPHINE HYDROCHLORIDE [Suspect]
     Indication: WITHDRAWAL SYNDROME
     Route: 048
     Dates: start: 20120119, end: 20120126
  16. LYRICA [Suspect]
     Indication: PAIN
     Route: 048
     Dates: start: 20120102, end: 20120216
  17. LYRICA [Suspect]
     Indication: PAIN
     Route: 048
     Dates: start: 20111215, end: 20120101
  18. LENDORMIN D [Suspect]
     Indication: PRODUCT USED FOR UNKNOWN INDICATION
     Dosage: 0.25 mg as per necessary
     Route: 048
     Dates: start: 20091111
  19. LECICARBON [Concomitant]
     Indication: CONSTIPATION
     Route: 054
     Dates: start: 20120105
  20. PRIMPERAN [Concomitant]
     Indication: PROPHYLAXIS
     Dosage: 1 p.r.n
     Route: 048
     Dates: start: 20120202, end: 20120216
  21. PRIMPERAN [Concomitant]
     Indication: PROPHYLAXIS
     Route: 048
     Dates: start: 20111222, end: 20111222
  22. MAGLAX [Concomitant]
     Indication: CONSTIPATION
     Route: 048
     Dates: start: 20111222, end: 20120111
  23. PURSENNID [Concomitant]
     Route: 048
     Dates: start: 20110126, end: 20110126
  24. LAXOBERON [Concomitant]
     Indication: CONSTIPATION
     Dosage: 5 to 10 mg per day, as needed
     Route: 048
     Dates: start: 20111229, end: 20111229
  25. BIOFERMIN [Concomitant]
     Indication: PRODUCT USED FOR UNKNOWN INDICATION
     Route: 048
     Dates: start: 20120112
  26. OLMETEC [Concomitant]
     Indication: HYPERTENSION
     Route: 048
     Dates: start: 20070110
  27. LIPITOR [Concomitant]
     Indication: HYPERLIPIDAEMIA
     Route: 048
     Dates: start: 20080227
  28. LENDORMIN D [Concomitant]
     Route: 048
     Dates: start: 20091111, end: 20100729
  29. LENDORMIN D [Concomitant]
     Route: 048
     Dates: start: 20100730, end: 20111214
  30. LENDORMIN D [Concomitant]
     Route: 048
     Dates: start: 20120106
  31. ZANTAC [Concomitant]
     Route: 048
     Dates: start: 20111212
  32. PRIMPERAN [Concomitant]
     Route: 041
     Dates: start: 20120216, end: 20120216
  33. AN UNKNOWN MEDICATION [Concomitant]
     Route: 042
     Dates: start: 20120216, end: 20120216
  34. DEPAS [Concomitant]
     Indication: WITHDRAWAL SYNDROME
     Route: 048
     Dates: start: 20120308, end: 20120406
  35. NAUZELIN [Concomitant]
     Indication: PRODUCT USED FOR UNKNOWN INDICATION
     Route: 048
     Dates: start: 20120216, end: 20120223
  36. AN UNKNOWN MEDICATION [Concomitant]
     Indication: PRODUCT USED FOR UNKNOWN INDICATION
     Dosage: as required
     Route: 048

REACTIONS (8)
  - Constipation [Not Recovered/Not Resolved]
  - Nausea [Recovered/Resolved]
  - Vomiting [Recovered/Resolved]
  - Eating disorder [Recovered/Resolved]
  - Weight decreased [Recovered/Resolved]
  - Palpitations [Recovered/Resolved]
  - Withdrawal syndrome [Recovered/Resolved]
  - Somnolence [Not Recovered/Not Resolved]
